FAERS Safety Report 10908197 (Version 1)
Quarter: 2015Q1

REPORT INFORMATION
  Report Type: Spontaneous
  Country: US (occurrence: US)
  Receive Date: 20150312
  Receipt Date: 20150312
  Transmission Date: 20150721
  Serious: No
  Sender: FDA-Public Use
  Company Number: US-INCYTE CORPORATION-2015IN000673

PATIENT
  Age: 36 Year
  Sex: Female
  Weight: 71.66 kg

DRUGS (1)
  1. JAKAFI [Suspect]
     Active Substance: RUXOLITINIB
     Indication: MYELOFIBROSIS
     Dosage: 20 MG, BID
     Route: 048
     Dates: start: 20140305

REACTIONS (2)
  - Serum ferritin decreased [Recovering/Resolving]
  - Weight increased [Recovering/Resolving]

NARRATIVE: CASE EVENT DATE: 201411
